FAERS Safety Report 6018093-7 (Version None)
Quarter: 2008Q4

REPORT INFORMATION
  Report Type: 
  Country: None (occurrence: None)
  Receive Date: 20081223
  Receipt Date: 20081218
  Transmission Date: 20090506
  Serious: Yes (Hospitalization, Disabling)
  Sender: FDA-Public Use
  Company Number: IT-AMGEN-UK282817

PATIENT
  Sex: Male
  Weight: 87 kg

DRUGS (8)
  1. PANITUMUMAB [Suspect]
     Indication: COLORECTAL CANCER
     Route: 042
     Dates: start: 20071031, end: 20080520
  2. OXALIPLATIN [Concomitant]
     Dates: start: 20071031
  3. LEUCOVORIN CALCIUM [Concomitant]
     Dates: start: 20071031
  4. FLUOROURACIL [Concomitant]
     Dates: start: 20071031
  5. KYTRIL [Concomitant]
  6. RABEPRAZOLE SODIUM [Concomitant]
  7. EUTIROX [Concomitant]
     Dates: start: 20050101
  8. HUMALOG [Concomitant]

REACTIONS (1)
  - CEREBROVASCULAR ACCIDENT [None]
